FAERS Safety Report 6106527-9 (Version None)
Quarter: 2009Q1

REPORT INFORMATION
  Report Type: 
  Country: None (occurrence: None)
  Receive Date: 20090304
  Receipt Date: 20090226
  Transmission Date: 20090719
  Serious: Yes (Hospitalization)
  Sender: FDA-Public Use
  Company Number: TPA2009A00234

PATIENT
  Age: 76 Year
  Sex: Male
  Weight: 85.9566 kg

DRUGS (10)
  1. PIOGLITAZONE HCL [Suspect]
     Indication: CARDIOVASCULAR EVENT PROPHYLAXIS
     Dosage: 1 IN 1 D, PER ORAL
     Route: 048
     Dates: start: 20080501
  2. PIOGLITAZONE HCL [Suspect]
     Indication: CEREBROVASCULAR ACCIDENT PROPHYLAXIS
     Dosage: 1 IN 1 D, PER ORAL
     Route: 048
     Dates: start: 20080501
  3. CARDIZEM [Concomitant]
  4. COZAAR [Concomitant]
  5. ZOCOR [Concomitant]
  6. FLOMAX [Concomitant]
  7. AGGRENOX [Concomitant]
  8. CANASA [Concomitant]
  9. ALLEGRA [Concomitant]
  10. NASACORT [Concomitant]

REACTIONS (4)
  - NECK PAIN [None]
  - ROAD TRAFFIC ACCIDENT [None]
  - TIBIA FRACTURE [None]
  - URINARY RETENTION [None]
